FAERS Safety Report 11025569 (Version 2)
Quarter: 2015Q2

REPORT INFORMATION
  Report Type: Spontaneous
  Country: US (occurrence: US)
  Receive Date: 20150414
  Receipt Date: 20150526
  Transmission Date: 20150821
  Serious: No
  Sender: FDA-Public Use
  Company Number: US-PFIZER INC-2015121308

PATIENT
  Age: 53 Year
  Sex: Male

DRUGS (12)
  1. PREDNISONE. [Concomitant]
     Active Substance: PREDNISONE
     Dosage: 10 MG, UNK(3 TABLETS BY MOUTH DAILY X 3 DAYS, 2 TABLETS DAILY X 3 DAYS, 1. TABLET DAILY X 3 DAYS)
     Route: 048
  2. ASPIRIN. [Concomitant]
     Active Substance: ASPIRIN
     Dosage: 81 MG, 1X/DAY (TAKE WITH FOOD OR MILK)
     Route: 048
  3. ZOLPIDEM [Concomitant]
     Active Substance: ZOLPIDEM\ZOLPIDEM TARTRATE
     Dosage: 5 MG, AS NEEDED (AT BEDTIME AS NEEDED)
     Route: 048
  4. LEVOFLOXACIN. [Concomitant]
     Active Substance: LEVOFLOXACIN
     Dosage: 500 MG, 1X/DAY
     Route: 048
  5. NOVOLOG MIX 70/30 [Concomitant]
     Active Substance: INSULIN ASPART
     Dosage: 100 IU/ML, UNK (UNITS FOR BS }200, 7 UNITS FOR BS}300, 10 UNITS FOR BS}400 )
     Route: 058
  6. SENNOSIDES-DOCUSATE SODIUM [Concomitant]
     Active Substance: DOCUSATE SODIUM\SENNOSIDES
     Dosage: 1 DF, 2X/DAY (8.6-50 MG)
     Route: 048
  7. MAGNESIUM OXIDE. [Concomitant]
     Active Substance: MAGNESIUM OXIDE
     Dosage: 400 MG, 1X/DAY
     Route: 048
  8. OXYCODONE [Concomitant]
     Active Substance: OXYCODONE
     Indication: PAIN
     Dosage: 5 MG, AS NEEDED (1 OR 2 TABLET(S) (10 MG) BY MOUTH EVERY 3 TO 4 HOURS)
     Route: 048
  9. XALKORI [Suspect]
     Active Substance: CRIZOTINIB
     Indication: B-CELL LYMPHOMA
     Dosage: 250 MG, 2X/DAY
     Route: 048
     Dates: start: 20150210
  10. PROAIR HFA [Concomitant]
     Active Substance: ALBUTEROL SULFATE
     Indication: ASTHMA
     Dosage: 90 ?G, AS NEEDED (EVERY FOUR HOURS AS NEEDED)
  11. NOVOLOG MIX 70/30 [Concomitant]
     Active Substance: INSULIN ASPART
     Dosage: 100 IU/ML, UNK (30 UNITS W BREAKFAST AND 20 UNITS W SUPPER)
     Route: 058
  12. POLYETHYLENE GLYCOL 3350. [Concomitant]
     Active Substance: POLYETHYLENE GLYCOL 3350
     Dosage: 17 G, DAILY (ONCE DAILY AS NEEDED)
     Route: 048

REACTIONS (2)
  - Rash [Unknown]
  - Product use issue [Unknown]
